FAERS Safety Report 13585709 (Version 1)
Quarter: 2017Q2

REPORT INFORMATION
  Report Type: Spontaneous
  Country: NL (occurrence: NL)
  Receive Date: 20170526
  Receipt Date: 20170526
  Transmission Date: 20170830
  Serious: Yes (Life-Threatening, Other)
  Sender: FDA-Public Use
  Company Number: NL-ENDO PHARMACEUTICALS INC-2017-003122

PATIENT
  Age: 46 Year
  Sex: Male
  Weight: 89 kg

DRUGS (1)
  1. FORTESTA [Suspect]
     Active Substance: TESTOSTERONE
     Indication: SERTOLI-CELL-ONLY SYNDROME
     Dosage: 9 DF, LEFT SIDE FOUR PUMPS (40 MG) AND ON THE RIGHT SIDE FIVE PUMPS (50 MG) EVERY MORNING
     Route: 065
     Dates: start: 20170110

REACTIONS (4)
  - Dizziness [Unknown]
  - Fatigue [Not Recovered/Not Resolved]
  - Palpitations [Not Recovered/Not Resolved]
  - Muscle spasms [Not Recovered/Not Resolved]

NARRATIVE: CASE EVENT DATE: 20170110
